FAERS Safety Report 6296354-4 (Version None)
Quarter: 2009Q3

REPORT INFORMATION
  Report Type: 
  Country: None (occurrence: None)
  Receive Date: 20090804
  Receipt Date: 20090727
  Transmission Date: 20100115
  Serious: Yes (Other)
  Sender: FDA-Public Use
  Company Number: PHHY2009GB31862

PATIENT
  Sex: Male

DRUGS (1)
  1. NEORAL [Suspect]
     Indication: BONE MARROW TRANSPLANT
     Dosage: 75 MG, BID

REACTIONS (4)
  - BALANCE DISORDER [None]
  - FALL [None]
  - FEELING ABNORMAL [None]
  - RASH [None]
